FAERS Safety Report 5728247-2 (Version None)
Quarter: 2008Q2

REPORT INFORMATION
  Report Type: 
  Country: None (occurrence: None)
  Receive Date: 20080506
  Receipt Date: 20080425
  Transmission Date: 20081010
  Serious: Yes (Other)
  Sender: FDA-Public Use
  Company Number: DE-JNJFOC-20080403771

PATIENT
  Sex: Female

DRUGS (2)
  1. IONSYS [Suspect]
     Indication: PROCEDURAL PAIN
     Route: 044
  2. KODAN [Suspect]
     Indication: ANTIBIOTIC PROPHYLAXIS
     Route: 061

REACTIONS (2)
  - APPLICATION SITE BURN [None]
  - APPLICATION SITE ERYTHEMA [None]
